FAERS Safety Report 6880242-6 (Version None)
Quarter: 2010Q3

REPORT INFORMATION
  Report Type: 
  Country: None (occurrence: None)
  Receive Date: 20100728
  Receipt Date: 20100714
  Transmission Date: 20110219
  Serious: Yes (Other)
  Sender: FDA-Public Use
  Company Number: DE-PFIZER INC-2010087738

PATIENT
  Age: 37 Year
  Sex: Male

DRUGS (3)
  1. LYRICA [Suspect]
     Indication: ANXIETY DISORDER
     Dosage: 25MG IN MORNING, 75MG IN EVENING
     Dates: start: 20100601
  2. LYRICA [Suspect]
     Dosage: 50 MG DAILY
  3. OPIPRAMOL [Concomitant]

REACTIONS (3)
  - HEART RATE INCREASED [None]
  - LIMB DISCOMFORT [None]
  - OSTEOMYELITIS [None]
